FAERS Safety Report 25085990 (Version 3)
Quarter: 2025Q2

REPORT INFORMATION
  Report Type: Spontaneous
  Country: US (occurrence: US)
  Receive Date: 20250317
  Receipt Date: 20250522
  Transmission Date: 20250717
  Serious: No
  Sender: SANOFI AVENTIS
  Company Number: US-SA-2025SA076818

PATIENT
  Age: 57 Year
  Sex: Male

DRUGS (9)
  1. DUPIXENT [Suspect]
     Active Substance: DUPILUMAB
     Indication: Eczema
     Route: 058
     Dates: start: 20250114, end: 20250114
  2. DUPIXENT [Suspect]
     Active Substance: DUPILUMAB
     Dosage: 300 MG, QOW
     Route: 058
     Dates: start: 20250211
  3. DUPIXENT [Suspect]
     Active Substance: DUPILUMAB
     Dosage: 300 MG, QOW
     Route: 058
     Dates: start: 20250128
  4. FLUTICASONE [Concomitant]
     Active Substance: FLUTICASONE
     Route: 045
  5. AZELASTINE [Concomitant]
     Active Substance: AZELASTINE
  6. PREDNISONE [Concomitant]
     Active Substance: PREDNISONE
  7. FAMOTIDINE [Concomitant]
     Active Substance: FAMOTIDINE
  8. MONTELUKAST [Concomitant]
     Active Substance: MONTELUKAST
     Dates: end: 202502
  9. METOPROLOL [Concomitant]
     Active Substance: METOPROLOL

REACTIONS (7)
  - White blood cell count increased [Unknown]
  - Localised infection [Recovered/Resolved]
  - Urinary tract infection [Unknown]
  - Eczema [Not Recovered/Not Resolved]
  - Rash erythematous [Not Recovered/Not Resolved]
  - Accidental exposure to product [Unknown]
  - Exposure via skin contact [Unknown]

NARRATIVE: CASE EVENT DATE: 20250101
